FAERS Safety Report 23990744 (Version 1)
Quarter: 2024Q2

REPORT INFORMATION
  Report Type: Spontaneous
  Country: US (occurrence: US)
  Receive Date: 20240619
  Receipt Date: 20240619
  Transmission Date: 20240716
  Serious: No
  Sender: FDA-Public Use
  Company Number: US-FreseniusKabi-FK202409040

PATIENT
  Age: 79 Year
  Sex: Male

DRUGS (3)
  1. HYDROMORPHONE [Suspect]
     Active Substance: HYDROMORPHONE
     Indication: Pain
     Dosage: FORM OF ADMINISTRATION AND ROUTE OF ADMINISTRATION: UNKNOWN
  2. PRIALT [Suspect]
     Active Substance: ZICONOTIDE ACETATE
     Indication: Pain
     Dosage: FORM OF ADMINISTRATION: INTRATHECAL INFUSION?ROUTE OF ADMINISTRATION: INTRATHECAL?DOSE: UNKNOWN
  3. MORPHINE [Concomitant]
     Active Substance: MORPHINE
     Indication: Pain

REACTIONS (4)
  - Feeling abnormal [Unknown]
  - Formication [Unknown]
  - Anxiety [Unknown]
  - Off label use [Unknown]

NARRATIVE: CASE EVENT DATE: 20240520
